FAERS Safety Report 6637834-9 (Version None)
Quarter: 2010Q1

REPORT INFORMATION
  Report Type: 
  Country: None (occurrence: None)
  Receive Date: 20100317
  Receipt Date: 20100304
  Transmission Date: 20100710
  Serious: Yes (Other)
  Sender: FDA-Public Use
  Company Number: PHEH2008US11463

PATIENT
  Sex: Male

DRUGS (23)
  1. AREDIA [Suspect]
     Dosage: 90 MG, UNK
     Dates: start: 20020701, end: 20041001
  2. ZOMETA [Suspect]
     Dosage: 2 MG, UNK
     Dates: start: 20050126, end: 20050518
  3. VITAMIN E [Concomitant]
  4. VITAMIN C [Concomitant]
  5. DEXAMETHASONE [Concomitant]
  6. PRILOSEC [Concomitant]
  7. PROCRIT                            /00909301/ [Concomitant]
  8. THALIDOMIDE [Concomitant]
  9. PRIMAXIN [Concomitant]
  10. TOPROL-XL [Concomitant]
  11. VANCOMYCIN [Concomitant]
  12. ZITHROMAX [Concomitant]
  13. DIFLUCAN [Concomitant]
  14. LEVAQUIN [Concomitant]
  15. MAGNESIUM OXIDE [Concomitant]
  16. AMBIEN [Concomitant]
  17. SENSIPAR [Concomitant]
  18. RENAGEL [Concomitant]
  19. MULTIVITAMIN ^LAPPE^ [Concomitant]
  20. GABAPENTIN [Concomitant]
  21. VELCADE [Concomitant]
  22. ANZEMET [Concomitant]
  23. ALOXI [Concomitant]

REACTIONS (45)
  - ACIDOSIS [None]
  - ANAEMIA [None]
  - ANXIETY [None]
  - ARTHRALGIA [None]
  - ASTHENIA [None]
  - BACK PAIN [None]
  - BONE OPERATION [None]
  - BUNDLE BRANCH BLOCK RIGHT [None]
  - DEBRIDEMENT [None]
  - DENTAL CARIES [None]
  - DEVICE RELATED SEPSIS [None]
  - DYSURIA [None]
  - EMOTIONAL DISTRESS [None]
  - GENERAL PHYSICAL HEALTH DETERIORATION [None]
  - HEADACHE [None]
  - HYPERCALCAEMIA [None]
  - HYPERPARATHYROIDISM [None]
  - HYPERPHOSPHATAEMIA [None]
  - HYPERTENSION [None]
  - IMPAIRED HEALING [None]
  - INFECTION [None]
  - INJURY [None]
  - INTERVERTEBRAL DISC COMPRESSION [None]
  - INTERVERTEBRAL DISC PROTRUSION [None]
  - NEPHROLITHIASIS [None]
  - NEUROPATHY PERIPHERAL [None]
  - ORAL SURGERY [None]
  - OSTEOARTHRITIS [None]
  - OSTEONECROSIS [None]
  - OSTEOPENIA [None]
  - OSTEOPOROSIS [None]
  - PAIN [None]
  - PANCYTOPENIA [None]
  - PELVIC FRACTURE [None]
  - PHYSICAL DISABILITY [None]
  - RENAL FAILURE ACUTE [None]
  - RENAL FAILURE CHRONIC [None]
  - RIB FRACTURE [None]
  - SCAR [None]
  - SHOULDER DEFORMITY [None]
  - SPINAL FRACTURE [None]
  - SUBDURAL HAEMATOMA [None]
  - THROMBOCYTOPENIA [None]
  - TOOTH EXTRACTION [None]
  - TOOTH IMPACTED [None]
